FAERS Safety Report 7753256-1 (Version None)
Quarter: 2011Q3

REPORT INFORMATION
  Report Type: 
  Country: None (occurrence: None)
  Receive Date: 20110915
  Receipt Date: 20110630
  Transmission Date: 20111222
  Serious: No
  Sender: FDA-Public Use
  Company Number: US-GLAXOSMITHKLINE-A0934613A

PATIENT
  Age: 50 Year
  Sex: Male

DRUGS (1)
  1. NICORETTE (MINT) [Suspect]
     Indication: EX-TOBACCO USER
     Dates: start: 20110629, end: 20110629

REACTIONS (6)
  - HYPERSENSITIVITY [None]
  - SWOLLEN TONGUE [None]
  - PRODUCT QUALITY ISSUE [None]
  - LIP SWELLING [None]
  - THROAT IRRITATION [None]
  - URTICARIA [None]
